FAERS Safety Report 24058423 (Version 4)
Quarter: 2024Q3

REPORT INFORMATION
  Report Type: Spontaneous
  Country: US (occurrence: US)
  Receive Date: 20240708
  Receipt Date: 20240911
  Transmission Date: 20241017
  Serious: Yes (Other)
  Sender: NOVO NORDISK
  Company Number: US-NOVOPROD-1246837

PATIENT
  Sex: Male

DRUGS (2)
  1. OZEMPIC [Suspect]
     Active Substance: SEMAGLUTIDE
     Dosage: 0.5MG
     Route: 058
  2. OZEMPIC [Suspect]
     Active Substance: SEMAGLUTIDE
     Indication: Type 2 diabetes mellitus
     Dosage: 0.25MG
     Route: 058
     Dates: start: 20240611

REACTIONS (7)
  - Adverse drug reaction [Unknown]
  - Overdose [Unknown]
  - Cognitive disorder [Unknown]
  - Dizziness [Unknown]
  - Off label use [Unknown]
  - Nausea [Unknown]
  - Product dispensing error [Unknown]
